FAERS Safety Report 7283938-X (Version None)
Quarter: 2011Q1

REPORT INFORMATION
  Report Type: 
  Country: None (occurrence: None)
  Receive Date: 20110209
  Receipt Date: 20110126
  Transmission Date: 20110831
  Serious: Yes (Hospitalization, Other)
  Sender: FDA-Public Use
  Company Number: DE-ACTELION-A-US2011-44688

PATIENT

DRUGS (1)
  1. VENTAVIS [Suspect]
     Dosage: 2.5 ?G, TID
     Route: 055
     Dates: start: 20100601, end: 20101224

REACTIONS (2)
  - CIRCULATORY COLLAPSE [None]
  - INFLAMMATION [None]
